FAERS Safety Report 12831824 (Version 1)
Quarter: 2016Q4

REPORT INFORMATION
  Report Type: Spontaneous
  Country: US (occurrence: US)
  Receive Date: 20161010
  Receipt Date: 20161010
  Transmission Date: 20170207
  Serious: Yes (Other)
  Sender: FDA-Public Use
  Company Number: US-JNJCP-30000356344

PATIENT
  Sex: Female

DRUGS (7)
  1. J+J BABY BEDTIME LOTION [Concomitant]
     Route: 061
  2. JBABY BODY WASH UNSPECIFIED [Concomitant]
     Indication: PRODUCT USED FOR UNKNOWN INDICATION
     Route: 061
  3. JOHNSONS BABY POWDER CALMING LAVENDER CORNSTARCH / CHAMOMILE [Concomitant]
     Indication: PRODUCT USED FOR UNKNOWN INDICATION
     Route: 061
  4. JBABY SHAMPOO UNSPECIFIED [Concomitant]
     Indication: PRODUCT USED FOR UNKNOWN INDICATION
     Route: 061
  5. JOHNSONS PRODUCTS [Suspect]
     Active Substance: UNSPECIFIED INGREDIENT
     Indication: PRODUCT USED FOR UNKNOWN INDICATION
     Route: 061
  6. JOHNSONS PRODUCTS [Suspect]
     Active Substance: UNSPECIFIED INGREDIENT
     Indication: PRODUCT USED FOR UNKNOWN INDICATION
     Route: 061
  7. J+J BABY OIL GEL LAVENDAR [Concomitant]
     Indication: PRODUCT USED FOR UNKNOWN INDICATION
     Route: 061

REACTIONS (1)
  - Uterine disorder [Unknown]
